FAERS Safety Report 7416972-7 (Version None)
Quarter: 2011Q2

REPORT INFORMATION
  Report Type: 
  Country: None (occurrence: None)
  Receive Date: 20110415
  Receipt Date: 20110408
  Transmission Date: 20111010
  Serious: Yes (Other)
  Sender: FDA-Public Use
  Company Number: RU-GENZYME-FLUD-1000329

PATIENT
  Age: 41 Year

DRUGS (12)
  1. CAMPATH [Suspect]
     Dosage: UNK
     Route: 065
  2. FLUDARA [Suspect]
     Indication: CHRONIC LYMPHOCYTIC LEUKAEMIA
     Dosage: UNK
     Route: 065
  3. CAMPATH [Suspect]
     Dosage: UNK
     Route: 065
  4. FLUDARA [Suspect]
     Dosage: UNK
     Route: 065
  5. CAMPATH [Suspect]
     Dosage: UNK
     Route: 065
  6. CAMPATH [Suspect]
     Indication: CHRONIC LYMPHOCYTIC LEUKAEMIA
     Dosage: UNK
     Route: 065
  7. FLUDARA [Suspect]
     Dosage: UNK
     Route: 065
  8. CAMPATH [Suspect]
     Dosage: UNK
     Route: 065
  9. CAMPATH [Suspect]
     Dosage: UNK
     Route: 065
  10. FLUDARA [Suspect]
     Dosage: UNK
     Route: 065
  11. FLUDARA [Suspect]
     Dosage: UNK
     Route: 065
  12. FLUDARA [Suspect]
     Dosage: UNK
     Route: 065

REACTIONS (4)
  - THYROIDITIS [None]
  - URTICARIA [None]
  - PNEUMONIA [None]
  - FEBRILE NEUTROPENIA [None]
